FAERS Safety Report 7818536-X (Version None)
Quarter: 2011Q4

REPORT INFORMATION
  Report Type: 
  Country: None (occurrence: None)
  Receive Date: 20111017
  Receipt Date: 20111010
  Transmission Date: 20120403
  Serious: Yes (Other)
  Sender: FDA-Public Use
  Company Number: ES-ROCHE-1003592

PATIENT
  Age: 78 Year
  Sex: Male

DRUGS (2)
  1. CAPECITABINE [Suspect]
     Dosage: LOWERED DOSAGE
  2. CAPECITABINE [Suspect]
     Indication: COLON CANCER METASTATIC

REACTIONS (4)
  - DYSAESTHESIA [None]
  - PLANTAR ERYTHEMA [None]
  - GENITAL ERYTHEMA [None]
  - PALMAR ERYTHEMA [None]
